FAERS Safety Report 11328133 (Version 1)
Quarter: 2015Q3

REPORT INFORMATION
  Report Type: Spontaneous
  Country: GB (occurrence: GB)
  Receive Date: 20150731
  Receipt Date: 20150731
  Transmission Date: 20151125
  Serious: Yes (Other)
  Sender: FDA-Public Use
  Company Number: GB-FRESENIUS KABI-FK201503643

PATIENT
  Age: 65 Year
  Sex: Female

DRUGS (2)
  1. SIMPONI [Suspect]
     Active Substance: GOLIMUMAB
     Dates: start: 201404
  2. METHOTREXATE (MANUFACTURER UNKNOWN) [Suspect]
     Active Substance: METHOTREXATE
     Indication: PRODUCT USED FOR UNKNOWN INDICATION
     Route: 065

REACTIONS (5)
  - Injection site haemorrhage [Unknown]
  - Skin infection [Unknown]
  - Lower respiratory tract infection [Unknown]
  - Peripheral swelling [Unknown]
  - Blister [Unknown]

NARRATIVE: CASE EVENT DATE: 201502
